FAERS Safety Report 18240911 (Version 1)
Quarter: 2020Q3

REPORT INFORMATION
  Report Type: Spontaneous
  Country: US (occurrence: US)
  Receive Date: 20200906
  Receipt Date: 20200906
  Transmission Date: 20201103
  Serious: Yes (Other)
  Sender: FDA-Public Use
  Company Number: None

PATIENT
  Age: 35 Year
  Sex: Female
  Weight: 74.25 kg

DRUGS (2)
  1. XULANE [Concomitant]
     Active Substance: ETHINYL ESTRADIOL\NORELGESTROMIN
  2. OMEPRAZOLE. [Suspect]
     Active Substance: OMEPRAZOLE
     Indication: GASTROOESOPHAGEAL REFLUX DISEASE
     Dosage: ?          QUANTITY:1 CAPSULE(S);?
     Route: 048
     Dates: start: 20200609, end: 20200824

REACTIONS (16)
  - Insomnia [None]
  - Palpitations [None]
  - Chest discomfort [None]
  - Panic attack [None]
  - Rhinorrhoea [None]
  - Neck pain [None]
  - Diarrhoea [None]
  - Cough [None]
  - Heart rate increased [None]
  - Feeling abnormal [None]
  - Arthralgia [None]
  - Dyspnoea [None]
  - Anxiety [None]
  - Flank pain [None]
  - Decreased appetite [None]
  - Depression [None]

NARRATIVE: CASE EVENT DATE: 20200818
